FAERS Safety Report 20838143 (Version 1)
Quarter: 2022Q2

REPORT INFORMATION
  Report Type: Spontaneous
  Country: US (occurrence: US)
  Receive Date: 20220517
  Receipt Date: 20220517
  Transmission Date: 20220721
  Serious: No
  Sender: FDA-Public Use
  Company Number: US-ALLERGAN-2205686US

PATIENT
  Age: 38 Year
  Sex: Female

DRUGS (5)
  1. KYBELLA [Suspect]
     Active Substance: DEOXYCHOLIC ACID
     Indication: Fat tissue increased
     Dosage: 2 VIALS, SINGLE
     Route: 058
     Dates: start: 20220209, end: 20220209
  2. STELARA [Concomitant]
     Active Substance: USTEKINUMAB
  3. URSODIOL [Concomitant]
     Active Substance: URSODIOL
  4. LORAZEPAM [Concomitant]
     Active Substance: LORAZEPAM
     Dosage: UNK, PRN
  5. VITAMINS [Concomitant]
     Active Substance: VITAMINS

REACTIONS (4)
  - Inflammation [Not Recovered/Not Resolved]
  - Injection site discolouration [Recovered/Resolved]
  - Vascular injury [Recovered/Resolved]
  - Injection site bruising [Not Recovered/Not Resolved]

NARRATIVE: CASE EVENT DATE: 20220209
